FAERS Safety Report 8789914 (Version 1)
Quarter: 2012Q4

REPORT INFORMATION
  Report Type: 
  Country: US (occurrence: US)
  Receive Date: 20120917
  Receipt Date: 20120917
  Transmission Date: 20130627
  Serious: Yes (Hospitalization)
  Sender: FDA-Public Use
  Company Number: US-ASTRAZENECA-2012SE70491

PATIENT
  Sex: Male

DRUGS (3)
  1. METOPROLOL [Suspect]
     Indication: HYPERTENSION
     Route: 048
  2. TOPROL XL [Suspect]
     Indication: HYPERTENSION
     Route: 048
  3. HYDROCHLOROTHIAZIDE [Concomitant]

REACTIONS (4)
  - Atrial fibrillation [Unknown]
  - Stress [Unknown]
  - Diarrhoea [Unknown]
  - Fatigue [Unknown]
